FAERS Safety Report 14381575 (Version 1)
Quarter: 2018Q1

REPORT INFORMATION
  Report Type: Other
  Country: US (occurrence: US)
  Receive Date: 20180112
  Receipt Date: 20180112
  Transmission Date: 20180509
  Serious: Yes (Death)
  Sender: FDA-Public Use
  Company Number: US-GENUS_LIFESCIENCES-USA-POI0580201800051

PATIENT
  Age: 19 Year
  Sex: Male

DRUGS (12)
  1. QUETIAPINE. [Suspect]
     Active Substance: QUETIAPINE
     Dates: end: 2016
  2. LORAZEPAM. [Suspect]
     Active Substance: LORAZEPAM
     Dates: end: 2016
  3. VALPROIC ACID. [Suspect]
     Active Substance: VALPROIC ACID
     Dates: end: 2016
  4. HYDROCHLOROTHIAZIDE. [Suspect]
     Active Substance: HYDROCHLOROTHIAZIDE
     Dates: end: 2016
  5. LISINOPRIL. [Suspect]
     Active Substance: LISINOPRIL
     Dates: end: 2016
  6. FLUPHENAZINE [Suspect]
     Active Substance: FLUPHENAZINE
     Dates: end: 2016
  7. SERTRALINE [Suspect]
     Active Substance: SERTRALINE HYDROCHLORIDE
     Dates: end: 2016
  8. LEVETIRACETAM. [Suspect]
     Active Substance: LEVETIRACETAM
     Dates: end: 2016
  9. OXCARBAZEPINE. [Suspect]
     Active Substance: OXCARBAZEPINE
     Dates: end: 2016
  10. OXYCODONE HCL CAPSULES [Suspect]
     Active Substance: OXYCODONE HYDROCHLORIDE
     Dates: end: 2016
  11. BENZTROPINE. [Suspect]
     Active Substance: BENZTROPINE
     Dates: end: 2016
  12. OMEPRAZOLE. [Suspect]
     Active Substance: OMEPRAZOLE
     Dates: end: 2016

REACTIONS (1)
  - Completed suicide [Fatal]

NARRATIVE: CASE EVENT DATE: 2016
